FAERS Safety Report 18391385 (Version 1)
Quarter: 2020Q4

REPORT INFORMATION
  Report Type: Spontaneous
  Country: US (occurrence: US)
  Receive Date: 20201016
  Receipt Date: 20201016
  Transmission Date: 20210114
  Serious: No
  Sender: FDA-Public Use
  Company Number: US-MYLANLABS-2020M1082806

PATIENT
  Age: 48 Year
  Sex: Female
  Weight: 50 kg

DRUGS (3)
  1. PROGESTERONE. [Concomitant]
     Active Substance: PROGESTERONE
     Dosage: 100 MILLIGRAM
  2. ESTRADIOL TRANSDERMAL SYSTEM [Suspect]
     Active Substance: ESTRADIOL
     Indication: HORMONE REPLACEMENT THERAPY
     Dosage: AS PRESCRIBED
     Route: 062
  3. MINIVELLE [Suspect]
     Active Substance: ESTRADIOL
     Indication: PRODUCT USED FOR UNKNOWN INDICATION
     Dosage: UNK

REACTIONS (9)
  - Skin reaction [Unknown]
  - Application site discolouration [Unknown]
  - Application site pruritus [Unknown]
  - Application site irritation [Unknown]
  - Drug ineffective [Unknown]
  - Blood oestrogen decreased [Unknown]
  - Dermatitis [Unknown]
  - Product adhesion issue [Unknown]
  - Skin atrophy [Unknown]

NARRATIVE: CASE EVENT DATE: 20200922
